FAERS Safety Report 7992192-2 (Version None)
Quarter: 2011Q4

REPORT INFORMATION
  Report Type: 
  Country: None (occurrence: None)
  Receive Date: 20111219
  Receipt Date: 20110623
  Transmission Date: 20120403
  Serious: No
  Sender: FDA-Public Use
  Company Number: US-ASTRAZENECA-2011SE38009

PATIENT
  Age: 62 Year
  Sex: Male

DRUGS (4)
  1. LISINOPRIL [Concomitant]
  2. HYDROCORT [Concomitant]
  3. CRESTOR [Suspect]
     Indication: HYPERCHOLESTEROLAEMIA
     Route: 048
     Dates: start: 20090101
  4. WELLBUTRIN [Concomitant]

REACTIONS (2)
  - MUSCLE SPASMS [None]
  - TREMOR [None]
